FAERS Safety Report 8781397 (Version 2)
Quarter: 2013Q4

REPORT INFORMATION
  Report Type: Spontaneous
  Country: US (occurrence: US)
  Receive Date: 20120913
  Receipt Date: 20131101
  Transmission Date: 20140711
  Serious: No
  Sender: FDA-Public Use
  Company Number: US-009507513-1209USA002262

PATIENT
  Sex: Male

DRUGS (3)
  1. VICTRELIS [Suspect]
     Indication: HEPATITIS C
     Dosage: UNK
     Dates: start: 201207
  2. PEG-INTRON [Suspect]
     Indication: HEPATITIS C
     Dosage: 180 MICROGRAM, QW
  3. RIBASPHERE [Concomitant]
     Indication: HEPATITIS C

REACTIONS (1)
  - Decreased activity [Unknown]
